FAERS Safety Report 5940042-8 (Version None)
Quarter: 2008Q4

REPORT INFORMATION
  Report Type: 
  Country: None (occurrence: None)
  Receive Date: 20081104
  Receipt Date: 20081027
  Transmission Date: 20090506
  Serious: Yes (Other)
  Sender: FDA-Public Use
  Company Number: PHHY2008FR25447

PATIENT
  Sex: Female
  Weight: 85 kg

DRUGS (5)
  1. EXELON [Suspect]
     Indication: DEMENTIA ALZHEIMER'S TYPE
     Dosage: 4.6 MG, QD
     Route: 062
     Dates: start: 20080415, end: 20080610
  2. OLMETEC [Concomitant]
     Dosage: 10 MG, QD
     Route: 048
     Dates: start: 20000101
  3. DILTIAZEM HCL [Concomitant]
     Dosage: 300 MG, QD
     Route: 048
     Dates: start: 20000101
  4. ASPIRIN AND DIPYRIDAMOLE [Concomitant]
     Dosage: UNK
     Route: 048
     Dates: start: 20020101
  5. LIPANTHYL [Concomitant]
     Dosage: 1 DF, UNK
     Dates: start: 20030101

REACTIONS (6)
  - ANOREXIA [None]
  - APPLICATION SITE ERYTHEMA [None]
  - EATING DISORDER [None]
  - NAUSEA [None]
  - URTICARIA [None]
  - VOMITING [None]
